FAERS Safety Report 19278403 (Version 1)
Quarter: 2021Q2

REPORT INFORMATION
  Report Type: Spontaneous
  Country: US (occurrence: US)
  Receive Date: 20210520
  Receipt Date: 20210520
  Transmission Date: 20210717
  Serious: Yes (Disabling, Other)
  Sender: FDA-Public Use
  Company Number: None

PATIENT
  Age: 44 Year
  Sex: Male
  Weight: 99 kg

DRUGS (5)
  1. FIBER [Concomitant]
     Active Substance: PSYLLIUM HUSK
  2. IBUPROFEN. [Concomitant]
     Active Substance: IBUPROFEN
  3. MULTIPLE VITAMIN [Concomitant]
     Active Substance: VITAMINS
  4. CIPROFLOXACIN. [Suspect]
     Active Substance: CIPROFLOXACIN
     Indication: PROSTATITIS
     Dosage: ?          QUANTITY:1 TABLET(S);?
     Route: 048
     Dates: start: 20210417, end: 20210419
  5. TYLENOL [Concomitant]
     Active Substance: ACETAMINOPHEN

REACTIONS (7)
  - Hypoaesthesia [None]
  - Headache [None]
  - Tendon disorder [None]
  - Muscular weakness [None]
  - Tendon rupture [None]
  - Paraesthesia [None]
  - Pain [None]

NARRATIVE: CASE EVENT DATE: 20210417
